FAERS Safety Report 24144696 (Version 1)
Quarter: 2024Q3

REPORT INFORMATION
  Report Type: Report from Study
  Country: NL (occurrence: NL)
  Receive Date: 20240728
  Receipt Date: 20240728
  Transmission Date: 20241017
  Serious: Yes (Hospitalization, Other)
  Sender: ABBVIE
  Company Number: NL-ABBVIE-5856055

PATIENT
  Sex: Male

DRUGS (10)
  1. CARBIDOPA\LEVODOPA [Suspect]
     Active Substance: CARBIDOPA\LEVODOPA
     Indication: Parkinson^s disease
     Dosage: MD 1.5 ML; CD 4.8 ML/H ED 1.7 ML, ?DURATION TEXT: REMAINS AT 24 HOURS
     Route: 050
     Dates: start: 20240222
  2. CARBIDOPA\LEVODOPA [Suspect]
     Active Substance: CARBIDOPA\LEVODOPA
     Dosage: CND 3.0 ML/H; END 1.5 ML, ?DURATION TEXT: REMAINS AT 24 HOURS
     Route: 050
     Dates: start: 20240214, end: 20240222
  3. CARBIDOPA\LEVODOPA [Suspect]
     Active Substance: CARBIDOPA\LEVODOPA
     Dosage: MD 3.0 ML; CD 4.8 ML/H ED 1.7 ML;?DURATION TEXT: REMAINS AT 24 HOURS
     Route: 050
     Dates: start: 20240101, end: 20240214
  4. CARBIDOPA\LEVODOPA [Suspect]
     Active Substance: CARBIDOPA\LEVODOPA
     Route: 050
     Dates: start: 20200831
  5. CARBIDOPA\LEVODOPA [Suspect]
     Active Substance: CARBIDOPA\LEVODOPA
     Dosage: MD 3.0 ML; CD 5.0 ML/H ED 1.7 ML; CND 3.0 ML/H; END 1.5 ML, ?DURATION TEXT: REMAINS AT 24 HOURS
     Route: 050
     Dates: start: 20231012, end: 20240101
  6. POLYETHYLENE GLYCOLS [Concomitant]
     Active Substance: POLYETHYLENE GLYCOLS
     Indication: Gastrointestinal motility disorder
  7. EUTHYROX [Concomitant]
     Active Substance: LEVOTHYROXINE SODIUM
     Indication: Product used for unknown indication
  8. Ascal [Concomitant]
     Indication: Product used for unknown indication
  9. STALEVO [Concomitant]
     Active Substance: CARBIDOPA\ENTACAPONE\LEVODOPA
     Indication: Product used for unknown indication
     Dosage: PRODUCT (STALEVO) - FREQUENCY TEXT: AT 7.30AM, 11.30AM, 3.30PM AND 7.30 PM
  10. NEUPRO [Concomitant]
     Active Substance: ROTIGOTINE
     Indication: Product used for unknown indication
     Dosage: 8 MILLIGRAM

REACTIONS (5)
  - Inguinal hernia [Recovered/Resolved]
  - On and off phenomenon [Not Recovered/Not Resolved]
  - Freezing phenomenon [Not Recovered/Not Resolved]
  - Bradykinesia [Not Recovered/Not Resolved]
  - Speech disorder [Not Recovered/Not Resolved]

NARRATIVE: CASE EVENT DATE: 20240101
